FAERS Safety Report 12618510 (Version 1)
Quarter: 2016Q3

REPORT INFORMATION
  Report Type: Spontaneous
  Country: US (occurrence: None)
  Receive Date: 20160802
  Receipt Date: 20160802
  Transmission Date: 20161109
  Serious: No
  Sender: FDA-Public Use
  Company Number: None

PATIENT
  Age: 78 Year
  Sex: Female

DRUGS (24)
  1. LORAZEPAM. [Concomitant]
     Active Substance: LORAZEPAM
  2. FOSAMAX [Concomitant]
     Active Substance: ALENDRONATE SODIUM
  3. BUPROPION. [Concomitant]
     Active Substance: BUPROPION
  4. PEPCID [Concomitant]
     Active Substance: FAMOTIDINE
  5. CITALOPRAM [Concomitant]
     Active Substance: CITALOPRAM HYDROBROMIDE
  6. SEPTRA DS [Concomitant]
     Active Substance: SULFAMETHOXAZOLE\TRIMETHOPRIM
  7. CEPHALEXIN. [Concomitant]
     Active Substance: CEPHALEXIN
  8. PROCARDIA XL [Concomitant]
     Active Substance: NIFEDIPINE
  9. CLONAZEPAM. [Concomitant]
     Active Substance: CLONAZEPAM
  10. NYSTATIN. [Concomitant]
     Active Substance: NYSTATIN
  11. AMPYRA [Suspect]
     Active Substance: DALFAMPRIDINE
     Indication: MULTIPLE SCLEROSIS
     Route: 048
     Dates: start: 201006
  12. HYDROCORTISONE. [Concomitant]
     Active Substance: HYDROCORTISONE
  13. MIRALAX [Concomitant]
     Active Substance: POLYETHYLENE GLYCOL 3350
  14. PROAIR HFA [Concomitant]
     Active Substance: ALBUTEROL SULFATE
  15. FLONASE [Concomitant]
     Active Substance: FLUTICASONE PROPIONATE
  16. HIPREX [Concomitant]
     Active Substance: METHENAMINE HIPPURATE
  17. METOPROLOL. [Concomitant]
     Active Substance: METOPROLOL
  18. ZOLEDRONIC ACID [Concomitant]
     Active Substance: ZOLEDRONIC ACID
  19. TYLENOL [Concomitant]
     Active Substance: ACETAMINOPHEN
  20. BENADRYL [Concomitant]
     Active Substance: DIPHENHYDRAMINE HYDROCHLORIDE
  21. APAP-CODEINE [Concomitant]
  22. LOSARTAN. [Concomitant]
     Active Substance: LOSARTAN
  23. QUAIFENESSIN-CODEINE [Concomitant]
  24. LIPITOR [Concomitant]
     Active Substance: ATORVASTATIN CALCIUM

REACTIONS (1)
  - Laboratory test abnormal [None]

NARRATIVE: CASE EVENT DATE: 20160722
